FAERS Safety Report 7446602-X (Version None)
Quarter: 2011Q2

REPORT INFORMATION
  Report Type: 
  Country: None (occurrence: None)
  Receive Date: 20110429
  Receipt Date: 20110420
  Transmission Date: 20111010
  Serious: Yes (Other)
  Sender: FDA-Public Use
  Company Number: PHHY2011RU33797

PATIENT
  Age: 51 Year
  Sex: Female

DRUGS (3)
  1. FLUOROURACIL [Concomitant]
  2. CYCLOPHOSPHAMIDE [Concomitant]
  3. METHOTREXAT EBEWE [Suspect]
     Indication: BREAST CANCER
     Route: 042

REACTIONS (3)
  - VOMITING [None]
  - SYNCOPE [None]
  - NAUSEA [None]
